FAERS Safety Report 8887469 (Version 1)
Quarter: 2012Q4

REPORT INFORMATION
  Report Type: Spontaneous
  Country: US (occurrence: None)
  Receive Date: 20121101
  Receipt Date: 20121101
  Transmission Date: 20130627
  Serious: Yes (Life-Threatening, Hospitalization, Disabling)
  Sender: FDA-Public Use
  Company Number: None

PATIENT
  Age: 93 Year
  Sex: Male
  Weight: 73.3 kg

DRUGS (1)
  1. BOTOX [Suspect]
     Indication: DIVERTICULUM ESOPHAGEAL
     Dates: start: 20120405

REACTIONS (9)
  - Regurgitation [None]
  - Weight decreased [None]
  - Disorientation [None]
  - Tongue disorder [None]
  - Dysarthria [None]
  - Impaired self-care [None]
  - Cough [None]
  - Memory impairment [None]
  - Ageusia [None]
